FAERS Safety Report 5389555-0 (Version None)
Quarter: 2007Q3

REPORT INFORMATION
  Report Type: 
  Country: None (occurrence: None)
  Receive Date: 20070717
  Receipt Date: 20070401
  Transmission Date: 20080115
  Serious: Yes (Other)
  Sender: FDA-Public Use
  Company Number: SE-ROCHE-349435

PATIENT
  Age: 44 Year
  Sex: Female

DRUGS (3)
  1. PEGASYS [Suspect]
     Route: 042
     Dates: start: 20030224
  2. REBETOL [Suspect]
     Route: 048
     Dates: start: 20030224
  3. TRYPTIZOL [Concomitant]
     Route: 048

REACTIONS (1)
  - TUBERCULOSIS [None]
